FAERS Safety Report 18467112 (Version 2)
Quarter: 2020Q4

REPORT INFORMATION
  Report Type: Report from Study
  Country: None (occurrence: US)
  Receive Date: 20201105
  Receipt Date: 20201222
  Transmission Date: 20210114
  Serious: Yes (Hospitalization, Other)
  Sender: FDA-Public Use
  Company Number: US-ABBVIE-20K-163-3636936-00

PATIENT
  Age: 63 Year
  Sex: Female
  Weight: 68.1 kg

DRUGS (1)
  1. HUMIRA [Suspect]
     Active Substance: ADALIMUMAB
     Indication: RHEUMATOID ARTHRITIS
     Route: 058

REACTIONS (10)
  - Medical device implantation [Unknown]
  - Cholelithiasis [Unknown]
  - Spinal operation [Unknown]
  - Immunodeficiency [Unknown]
  - Dental caries [Unknown]
  - Degenerative bone disease [Unknown]
  - Gallbladder disorder [Unknown]
  - Knee arthroplasty [Unknown]
  - Tooth fracture [Unknown]
  - Gallbladder enlargement [Unknown]

NARRATIVE: CASE EVENT DATE: 202008
